FAERS Safety Report 14257569 (Version 1)
Quarter: 2017Q4

REPORT INFORMATION
  Report Type: Report from Study
  Country: FR (occurrence: FR)
  Receive Date: 20171207
  Receipt Date: 20171207
  Transmission Date: 20180321
  Serious: Yes (Other)
  Sender: FDA-Public Use
  Company Number: FR-ROCHE-1796419

PATIENT
  Age: 39 Year
  Sex: Female

DRUGS (1)
  1. VEMURAFENIB. [Suspect]
     Active Substance: VEMURAFENIB
     Indication: METASTATIC MALIGNANT MELANOMA
     Dosage: FOUR TABLETS OF 240 MG, TWICE IN A DAY.
     Route: 048

REACTIONS (2)
  - Acute kidney injury [Unknown]
  - Kidney fibrosis [Unknown]
